FAERS Safety Report 5738826-4 (Version None)
Quarter: 2008Q2

REPORT INFORMATION
  Report Type: 
  Country: None (occurrence: None)
  Receive Date: 20080515
  Receipt Date: 20080328
  Transmission Date: 20081010
  Serious: No
  Sender: FDA-Public Use
  Company Number: A0718080A

PATIENT
  Age: 53 Year
  Sex: Male

DRUGS (4)
  1. VERAMYST [Suspect]
     Dosage: 2SPR PER DAY
     Route: 045
     Dates: start: 20080310, end: 20080327
  2. HYZAAR [Concomitant]
  3. LEXAPRO [Concomitant]
  4. SUPPLEMENT [Concomitant]

REACTIONS (1)
  - SINUSITIS [None]
